FAERS Safety Report 5713948-2 (Version None)
Quarter: 2008Q2

REPORT INFORMATION
  Report Type: 
  Country: None (occurrence: None)
  Receive Date: 20080422
  Receipt Date: 20080422
  Transmission Date: 20081010
  Serious: No
  Sender: FDA-Public Use
  Company Number: None

PATIENT
  Sex: Male
  Weight: 96 kg

DRUGS (3)
  1. ELOXATIN [Suspect]
     Dosage: 294.5 MG
  2. BEVACIZUMAB (RHUMAB VEGF) [Suspect]
     Dosage: 940 MG
  3. CAMPTOSAR [Suspect]
     Dosage: 380 MG

REACTIONS (7)
  - DEAFNESS [None]
  - EAR DISCOMFORT [None]
  - EAR PRURITUS [None]
  - FLUSHING [None]
  - HYPERTENSION [None]
  - INFUSION RELATED REACTION [None]
  - PRURITUS [None]
